FAERS Safety Report 4546218-9 (Version None)
Quarter: 2005Q1

REPORT INFORMATION
  Report Type: 
  Country: None (occurrence: None)
  Receive Date: 20050103
  Receipt Date: 20041222
  Transmission Date: 20050727
  Serious: Yes (Hospitalization)
  Sender: FDA-Public Use
  Company Number: 04P-167-0283029-00

PATIENT
  Age: 35 Year
  Sex: Female
  Weight: 70 kg

DRUGS (13)
  1. HUMIRA [Suspect]
     Indication: RHEUMATOID ARTHRITIS
     Dosage: 40 MG, 1 IN 2 WK, SUBCUTANEOUS
     Route: 058
     Dates: start: 20040429
  2. PREDNISOLONE [Concomitant]
  3. AZATHIOPRINE [Concomitant]
  4. ALENDRONATE SODIUM [Concomitant]
  5. MORPHINE SULFATE [Concomitant]
  6. MORPHINE SULFATE [Concomitant]
  7. FOLIC ACID [Concomitant]
  8. FERROUS SULFATE TAB [Concomitant]
  9. FLUOXETINE [Concomitant]
  10. HRT [Concomitant]
  11. DIHYDROCODEINE [Concomitant]
  12. TRIMETHOPRIM [Concomitant]
  13. MELOXICAM [Concomitant]

REACTIONS (2)
  - OSTEOMYELITIS [None]
  - STAPHYLOCOCCAL INFECTION [None]
